FAERS Safety Report 8008216 (Version 3)
Quarter: 2013Q1

REPORT INFORMATION
  Report Type: Spontaneous
  Country: CA (occurrence: CA)
  Receive Date: 20110624
  Receipt Date: 20130304
  Transmission Date: 20140127
  Serious: Yes (Hospitalization, Other)
  Sender: FDA-Public Use
  Company Number: CA-PFIZER INC-2011137006

PATIENT
  Age: 43 Year
  Sex: Male

DRUGS (1)
  1. CHAMPIX [Suspect]
     Dosage: UNK
     Dates: start: 200711

REACTIONS (8)
  - Suicide attempt [Recovered/Resolved]
  - Anger [Recovered/Resolved]
  - Physical assault [Recovered/Resolved]
  - Amnesia [Not Recovered/Not Resolved]
  - Feeling abnormal [Recovered/Resolved]
  - Restlessness [Unknown]
  - Abnormal dreams [Unknown]
  - Drug ineffective [Unknown]
